FAERS Safety Report 15347943 (Version 2)
Quarter: 2018Q4

REPORT INFORMATION
  Report Type: Spontaneous
  Country: JP (occurrence: JP)
  Receive Date: 20180904
  Receipt Date: 20181001
  Transmission Date: 20190204
  Serious: No
  Sender: FDA-Public Use
  Company Number: JP-SUNOVION-2018SUN003404

PATIENT
  Age: 78 Year
  Sex: Male

DRUGS (2)
  1. LUNESTA [Suspect]
     Active Substance: ESZOPICLONE
     Indication: INSOMNIA
     Dosage: 2 MG, HS
     Route: 048
     Dates: start: 20180810, end: 20180810
  2. SANSONINTO [Concomitant]
     Indication: INSOMNIA
     Dosage: 5 MG, QD
     Route: 065

REACTIONS (1)
  - Pruritus [Recovered/Resolved]

NARRATIVE: CASE EVENT DATE: 20180810
